FAERS Safety Report 17118065 (Version 1)
Quarter: 2019Q4

REPORT INFORMATION
  Report Type: Spontaneous
  Country: US (occurrence: US)
  Receive Date: 20191205
  Receipt Date: 20191205
  Transmission Date: 20200122
  Serious: No
  Sender: FDA-Public Use
  Company Number: US-SA-2019SA336887

PATIENT
  Age: 86 Year
  Sex: Male
  Weight: 74.83 kg

DRUGS (16)
  1. LYRICA [Concomitant]
     Active Substance: PREGABALIN
  2. FOLIC ACID. [Concomitant]
     Active Substance: FOLIC ACID
  3. MAGNESIUM [Concomitant]
     Active Substance: MAGNESIUM
  4. VITAMIN D3 [Concomitant]
     Active Substance: CHOLECALCIFEROL
  5. AMOXICLAV [Concomitant]
     Active Substance: AMOXICILLIN\CLAVULANATE POTASSIUM
     Indication: URINARY TRACT INFECTION
  6. COLCRYS [Concomitant]
     Active Substance: COLCHICINE
  7. METFORMIN [Concomitant]
     Active Substance: METFORMIN HYDROCHLORIDE
  8. VASOLEX [Concomitant]
     Active Substance: BALSAM PERU\CASTOR OIL\TRYPSIN
  9. IRON [Concomitant]
     Active Substance: IRON
  10. ELIQUIS [Suspect]
     Active Substance: APIXABAN
     Indication: HEART RATE IRREGULAR
     Dosage: 2.5 MG, BID
     Route: 048
     Dates: start: 20191120
  11. TAMSULOSIN [Concomitant]
     Active Substance: TAMSULOSIN
  12. PLAVIX [Suspect]
     Active Substance: CLOPIDOGREL BISULFATE
     Dosage: 75 MG, QD
     Route: 065
  13. AMARYL [Concomitant]
     Active Substance: GLIMEPIRIDE
  14. AMLODIPINE [Concomitant]
     Active Substance: AMLODIPINE BESYLATE
  15. METOPROLOL. [Concomitant]
     Active Substance: METOPROLOL
  16. B COMPLEX [VITAMIN B COMPLEX] [Concomitant]

REACTIONS (2)
  - Back pain [Not Recovered/Not Resolved]
  - Diarrhoea [Not Recovered/Not Resolved]

NARRATIVE: CASE EVENT DATE: 20191120
